FAERS Safety Report 8345171-X (Version None)
Quarter: 2012Q2

REPORT INFORMATION
  Report Type: 
  Country: None (occurrence: None)
  Receive Date: 20120508
  Receipt Date: 20120502
  Transmission Date: 20120825
  Serious: Yes (Hospitalization)
  Sender: FDA-Public Use
  Company Number: PHHY2012FR037846

PATIENT
  Sex: Female

DRUGS (2)
  1. DOCETAXEL [Suspect]
     Indication: BREAST CANCER
     Dosage: 190 MG, TOTAL
     Route: 042
     Dates: start: 20120210, end: 20120210
  2. PREDNISONE TAB [Concomitant]

REACTIONS (9)
  - ANAEMIA [None]
  - WEIGHT DECREASED [None]
  - GENERAL PHYSICAL CONDITION ABNORMAL [None]
  - NEUTROPENIA [None]
  - DECREASED APPETITE [None]
  - ABDOMINAL PAIN [None]
  - DYSGEUSIA [None]
  - LEUKOPENIA [None]
  - VISCERAL PAIN [None]
